FAERS Safety Report 23977074 (Version 3)
Quarter: 2024Q3

REPORT INFORMATION
  Report Type: Spontaneous
  Country: HU (occurrence: HU)
  Receive Date: 20240614
  Receipt Date: 20240806
  Transmission Date: 20241016
  Serious: Yes (Life-Threatening, Other)
  Sender: SANOFI AVENTIS
  Company Number: HU-SA-2024SA177468

PATIENT
  Age: 62 Year
  Sex: Female

DRUGS (13)
  1. ALEMTUZUMAB [Suspect]
     Active Substance: ALEMTUZUMAB
     Indication: T-cell prolymphocytic leukaemia
     Dosage: 28 DOSES OF ALEMTUZUMAB
     Route: 041
  2. ANTI-THYMOCYTE GLOBULIN (RABBIT) NOS [Suspect]
     Active Substance: LAPINE T-LYMPHOCYTE IMMUNE GLOBULIN
     Indication: Prophylaxis against graft versus host disease
     Dosage: UNK
     Dates: start: 20220518
  3. CYCLOPHOSPHAMIDE [Suspect]
     Active Substance: CYCLOPHOSPHAMIDE
     Indication: Prophylaxis against graft versus host disease
     Dosage: UNK
     Dates: start: 20220518
  4. FLUDARABINE PHOSPHATE [Suspect]
     Active Substance: FLUDARABINE PHOSPHATE
     Indication: Bone marrow conditioning regimen
     Dosage: UNK
  5. FLUDARABINE PHOSPHATE [Suspect]
     Active Substance: FLUDARABINE PHOSPHATE
     Indication: T-cell prolymphocytic leukaemia
  6. THIOGUANINE [Suspect]
     Active Substance: THIOGUANINE
     Indication: T-cell prolymphocytic leukaemia
     Dosage: UNK
  7. THIOGUANINE [Suspect]
     Active Substance: THIOGUANINE
     Indication: Bone marrow conditioning regimen
  8. MELPHALAN [Suspect]
     Active Substance: MELPHALAN
     Indication: T-cell prolymphocytic leukaemia
     Dosage: UNK
  9. MELPHALAN [Suspect]
     Active Substance: MELPHALAN
     Indication: Bone marrow conditioning regimen
  10. TACROLIMUS [Suspect]
     Active Substance: TACROLIMUS
     Indication: Prophylaxis against graft versus host disease
     Dosage: UNK
     Dates: start: 20220518
  11. MYCOPHENOLATE MOFETIL [Suspect]
     Active Substance: MYCOPHENOLATE MOFETIL
     Indication: Prophylaxis against graft versus host disease
     Dosage: UNK
     Dates: start: 20220518
  12. THIOTEPA [Suspect]
     Active Substance: THIOTEPA
     Indication: Bone marrow conditioning regimen
     Dosage: UNK
     Dates: start: 202205, end: 202205
  13. THIOTEPA [Suspect]
     Active Substance: THIOTEPA
     Indication: T-cell prolymphocytic leukaemia

REACTIONS (8)
  - Mucosal inflammation [Unknown]
  - Viral haemorrhagic cystitis [Not Recovered/Not Resolved]
  - Bacteraemia [Unknown]
  - Cytomegalovirus infection reactivation [Not Recovered/Not Resolved]
  - BK virus infection [Not Recovered/Not Resolved]
  - Fungal infection [Not Recovered/Not Resolved]
  - Parainfluenzae virus infection [Not Recovered/Not Resolved]
  - Human herpesvirus 6 infection reactivation [Not Recovered/Not Resolved]
